APPROVED DRUG PRODUCT: AEROLATE SR
Active Ingredient: THEOPHYLLINE
Strength: 260MG
Dosage Form/Route: CAPSULE, EXTENDED RELEASE;ORAL
Application: A085075 | Product #001
Applicant: FLEMING AND CO PHARMACEUTICALS INC
Approved: Nov 24, 1986 | RLD: No | RS: No | Type: DISCN